FAERS Safety Report 8067842-5 (Version None)
Quarter: 2012Q1

REPORT INFORMATION
  Report Type: 
  Country: None (occurrence: None)
  Receive Date: 20120124
  Receipt Date: 20120120
  Transmission Date: 20120608
  Serious: Yes (Hospitalization)
  Sender: FDA-Public Use
  Company Number: FR-PFIZER INC-K201100979

PATIENT
  Age: 74 Year
  Sex: Male

DRUGS (8)
  1. AMLODIPINE [Concomitant]
     Dosage: UNK
     Dates: start: 20080212
  2. BETAHISTINE [Concomitant]
     Dosage: UNK
     Dates: start: 19970519
  3. CLOPIDOGREL [Concomitant]
     Dosage: UNK
  4. ZOCOR [Concomitant]
     Dosage: UNK
     Dates: start: 20071214
  5. SERC [Concomitant]
     Dosage: UNK
  6. ASPIRIN [Concomitant]
     Dosage: UNK
  7. TEKTURNA [Suspect]
     Indication: ESSENTIAL HYPERTENSION
     Dosage: 100 MG, UNK
     Dates: start: 20080311, end: 20080411
  8. ALTACE [Suspect]
     Indication: ESSENTIAL HYPERTENSION
     Dosage: 10 MG, UNK
     Route: 048
     Dates: start: 20080311, end: 20080401

REACTIONS (3)
  - CHEST PAIN [None]
  - PLATELET COUNT DECREASED [None]
  - ACUTE MYOCARDIAL INFARCTION [None]
